FAERS Safety Report 9850733 (Version 2)
Quarter: 2014Q1

REPORT INFORMATION
  Report Type: Spontaneous
  Country: US (occurrence: None)
  Receive Date: 20140124
  Receipt Date: 20140131
  Transmission Date: 20141002
  Serious: Yes (Death)
  Sender: FDA-Public Use
  Company Number: 2014AP000699

PATIENT
  Age: 50 Year
  Sex: Female

DRUGS (4)
  1. AMLODIPINE BESYLATE [Suspect]
     Dosage: ; PO
     Route: 048
  2. DILTIAZEM [Suspect]
     Route: 048
  3. SIMVASTATIN [Concomitant]
  4. ESTROGENS CONJUGATED [Suspect]

REACTIONS (6)
  - Completed suicide [None]
  - Hypotension [None]
  - Bradycardia [None]
  - Hyperkalaemia [None]
  - Overdose [None]
  - Exposure via ingestion [None]
